FAERS Safety Report 8405456-5 (Version None)
Quarter: 2012Q2

REPORT INFORMATION
  Report Type: 
  Country: None (occurrence: None)
  Receive Date: 20120604
  Receipt Date: 20120524
  Transmission Date: 20120825
  Serious: Yes (Hospitalization)
  Sender: FDA-Public Use
  Company Number: US-BIOGENIDEC-2012BI019205

PATIENT
  Sex: Female

DRUGS (2)
  1. TYSABRI [Suspect]
     Indication: MULTIPLE SCLEROSIS
     Route: 042
     Dates: start: 20050124
  2. TYSABRI [Suspect]
     Route: 042
     Dates: start: 20090501, end: 20100901

REACTIONS (3)
  - HEAD INJURY [None]
  - BRAIN INJURY [None]
  - FALL [None]
